FAERS Safety Report 6437811-7 (Version None)
Quarter: 2009Q4

REPORT INFORMATION
  Report Type: 
  Country: None (occurrence: None)
  Receive Date: 20091112
  Receipt Date: 20091012
  Transmission Date: 20100525
  Serious: No
  Sender: FDA-Public Use
  Company Number: US-BAYER-200936054NA

PATIENT
  Sex: Female

DRUGS (2)
  1. CIPROFLOXACIN [Suspect]
     Indication: INJURY
     Dates: start: 20090701, end: 20091001
  2. AVELOX [Suspect]
     Indication: WOUND INFECTION
     Dates: start: 20091001

REACTIONS (1)
  - IMPAIRED HEALING [None]
